FAERS Safety Report 6983533-3 (Version None)
Quarter: 2010Q3

REPORT INFORMATION
  Report Type: 
  Country: None (occurrence: None)
  Receive Date: 20100914
  Receipt Date: 20080721
  Transmission Date: 20110219
  Serious: No
  Sender: FDA-Public Use
  Company Number: US-WYE-H05207508

PATIENT
  Age: 77 Year
  Sex: Male
  Weight: 97.61 kg

DRUGS (8)
  1. ADVIL LIQUI-GELS [Suspect]
     Indication: ARTHRALGIA
     Route: 048
     Dates: end: 20080719
  2. AMLODIPINE [Concomitant]
  3. NEXIUM [Concomitant]
  4. FLURAZEPAM [Concomitant]
  5. PLAVIX [Concomitant]
  6. AMITRIPTYLINE HCL [Concomitant]
  7. NORVASC [Concomitant]
  8. COZAAR [Concomitant]

REACTIONS (3)
  - SOMNOLENCE [None]
  - THERAPEUTIC RESPONSE UNEXPECTED [None]
  - VERTIGO [None]
